FAERS Safety Report 4782881-5 (Version None)
Quarter: 2005Q3

REPORT INFORMATION
  Report Type: 
  Country: None (occurrence: None)
  Receive Date: 20050928
  Receipt Date: 20050928
  Transmission Date: 20060218
  Serious: Yes (Hospitalization)
  Sender: FDA-Public Use
  Company Number: None

PATIENT
  Age: 64 Year
  Sex: Male
  Weight: 86.4 kg

DRUGS (9)
  1. MIDAZOLAM 3MG [Suspect]
     Indication: COLONOSCOPY
     Dosage: 3MG ONCE IV BOLUS
     Route: 040
     Dates: start: 20050726, end: 20050726
  2. MIDAZOLAM 3MG [Suspect]
     Indication: SEDATION
     Dosage: 3MG ONCE IV BOLUS
     Route: 040
     Dates: start: 20050726, end: 20050726
  3. FENTANYL [Suspect]
     Indication: ANALGESIC EFFECT
     Dosage: 50MCG ONCE IV BOLUS
     Route: 040
     Dates: start: 20050726, end: 20050726
  4. FENTANYL [Suspect]
     Indication: COLONOSCOPY
     Dosage: 50MCG ONCE IV BOLUS
     Route: 040
     Dates: start: 20050726, end: 20050726
  5. ALBUTEROL/IPRATROP [Concomitant]
  6. DILANTIN [Concomitant]
  7. TERAZOSIN HCL [Concomitant]
  8. PHENOBARBITAL TAB [Concomitant]
  9. SILDENAFIL CITRATE [Concomitant]

REACTIONS (2)
  - DEPRESSED LEVEL OF CONSCIOUSNESS [None]
  - SYNCOPE VASOVAGAL [None]
